FAERS Safety Report 9046884 (Version 1)
Quarter: 2013Q1

REPORT INFORMATION
  Report Type: Spontaneous
  Country: US (occurrence: None)
  Receive Date: 20130129
  Receipt Date: 20130129
  Transmission Date: 20140127
  Serious: Yes (Disabling)
  Sender: FDA-Public Use
  Company Number: None

PATIENT
  Age: 37 Year
  Sex: Male
  Weight: 71.67 kg

DRUGS (1)
  1. CYMBALTA [Suspect]

REACTIONS (4)
  - Libido decreased [None]
  - Erectile dysfunction [None]
  - Premature ejaculation [None]
  - Apathy [None]
